FAERS Safety Report 14194233 (Version 1)
Quarter: 2017Q4

REPORT INFORMATION
  Report Type: Spontaneous
  Country: US (occurrence: US)
  Receive Date: 20171116
  Receipt Date: 20171116
  Transmission Date: 20180321
  Serious: No
  Sender: FDA-Public Use
  Company Number: US-PFIZER INC-2017487017

PATIENT
  Age: 24 Year
  Sex: Female

DRUGS (2)
  1. EUCRISA [Suspect]
     Active Substance: CRISABOROLE
     Dosage: UNK, 2X/DAY
     Dates: start: 20171101
  2. EUCRISA [Suspect]
     Active Substance: CRISABOROLE
     Dosage: UNK, MORE THAN TWICE A DAY

REACTIONS (4)
  - Eye irritation [Unknown]
  - Dermatitis [Unknown]
  - Intentional product use issue [Unknown]
  - Erythema [Unknown]
